FAERS Safety Report 22907072 (Version 3)
Quarter: 2023Q4

REPORT INFORMATION
  Report Type: Spontaneous
  Country: US (occurrence: US)
  Receive Date: 20230905
  Receipt Date: 20231025
  Transmission Date: 20240109
  Serious: No
  Sender: FDA-Public Use
  Company Number: US-PFIZER INC-PV202300141410

PATIENT

DRUGS (1)
  1. THROMBIN-JMI [Suspect]
     Active Substance: THROMBIN
     Dosage: UNK

REACTIONS (1)
  - Product reconstitution quality issue [Unknown]
